FAERS Safety Report 6902718-5 (Version None)
Quarter: 2010Q3

REPORT INFORMATION
  Report Type: 
  Country: None (occurrence: None)
  Receive Date: 20100803
  Receipt Date: 20080725
  Transmission Date: 20110219
  Serious: No
  Sender: FDA-Public Use
  Company Number: US-PFIZER INC-2008056946

PATIENT
  Sex: Female
  Weight: 64.4 kg

DRUGS (5)
  1. LYRICA [Suspect]
     Indication: TREMOR
     Dates: start: 20080527
  2. PRIMIDONE [Concomitant]
  3. KEMADRIN [Concomitant]
  4. NARDIL [Concomitant]
  5. VALIUM [Concomitant]

REACTIONS (2)
  - SEDATION [None]
  - WEIGHT INCREASED [None]
